FAERS Safety Report 21268628 (Version 9)
Quarter: 2023Q1

REPORT INFORMATION
  Report Type: Report from Study
  Country: CN (occurrence: None)
  Receive Date: 20220830
  Receipt Date: 20230102
  Transmission Date: 20230417
  Serious: Yes (Hospitalization)
  Sender: FDA-Public Use
  Company Number: CN-ROCHE-3167294

PATIENT
  Age: 76 Year
  Sex: Male
  Weight: 70 kg

DRUGS (49)
  1. PLACEBO [Suspect]
     Active Substance: UNSPECIFIED INGREDIENT
     Indication: Lung adenocarcinoma
     Dosage: START DATE OF MOST RECENT DOSE OF STUDY DRUG PRIOR TO AE/SAE: 22/JUL/2022
     Route: 041
     Dates: start: 20210713
  2. CARBOPLATIN [Suspect]
     Active Substance: CARBOPLATIN
     Indication: Lung adenocarcinoma
     Dosage: DOSE LAST STUDY DRUG ADMIN PRIOR AE/SAE: 564 MG?START DATE OF MOST RECENT DOSE OF STUDY DRUG PRIOR T
     Route: 042
     Dates: start: 20210713
  3. BEVACIZUMAB [Suspect]
     Active Substance: BEVACIZUMAB
     Indication: Lung adenocarcinoma
     Dosage: DOSE LAST STUDY DRUG ADMIN PRIOR AE/SAE: 990 MG?START DATE OF MOST RECENT DOSE OF STUDY DRUG PRIOR T
     Route: 042
     Dates: start: 20210713
  4. PEMETREXED [Suspect]
     Active Substance: PEMETREXED
     Indication: Lung adenocarcinoma
     Dosage: DOSE LAST STUDY DRUG ADMIN PRIOR AE/SAE: 905 MG?START DATE OF MOST RECENT DOSE OF STUDY DRUG PRIOR T
     Route: 042
     Dates: start: 20210713
  5. FOLIC ACID [Concomitant]
     Active Substance: FOLIC ACID
     Dosage: GIVEN FOR PROPHYLAXIS
     Dates: start: 20210705
  6. LEUCOGEN [Concomitant]
     Active Substance: LEUCOGEN
     Dosage: GIVEN FOR PROPHYLAXIS
     Dates: start: 20210916
  7. LEUCOGEN [Concomitant]
     Active Substance: LEUCOGEN
     Dates: start: 20210713
  8. DEXAMETHASONE ACETATE [Concomitant]
     Active Substance: DEXAMETHASONE ACETATE
     Indication: Allergy prophylaxis
     Dosage: GIVEN FOR PROPHYLAXIS
     Route: 048
     Dates: start: 20211213
  9. DEXAMETHASONE ACETATE [Concomitant]
     Active Substance: DEXAMETHASONE ACETATE
     Dosage: GIVEN FOR PROPHYLAXIS
     Route: 048
     Dates: start: 20220104
  10. DEXAMETHASONE ACETATE [Concomitant]
     Active Substance: DEXAMETHASONE ACETATE
     Dosage: GIVEN FOR PROPHYLAXIS
     Route: 048
     Dates: start: 20220721, end: 20220721
  11. DEXAMETHASONE ACETATE [Concomitant]
     Active Substance: DEXAMETHASONE ACETATE
     Dosage: GIVEN FOR PROPHYLAXIS
     Route: 048
     Dates: start: 20220722, end: 20220723
  12. DEXAMETHASONE ACETATE [Concomitant]
     Active Substance: DEXAMETHASONE ACETATE
     Dosage: GIVEN FOR PROPHYLAXIS
     Route: 048
     Dates: start: 20220811, end: 20220811
  13. DEXAMETHASONE ACETATE [Concomitant]
     Active Substance: DEXAMETHASONE ACETATE
     Dosage: GIVEN FOR PROPHYLAXIS
     Route: 048
     Dates: start: 20220812, end: 20220813
  14. DEXAMETHASONE ACETATE [Concomitant]
     Active Substance: DEXAMETHASONE ACETATE
     Dosage: GIVEN FOR PROPHYLAXIS
     Route: 048
     Dates: start: 20220901, end: 20220901
  15. DEXAMETHASONE ACETATE [Concomitant]
     Active Substance: DEXAMETHASONE ACETATE
     Dosage: GIVEN FOR PROPHYLAXIS
     Route: 048
     Dates: start: 20220922, end: 20220922
  16. DEXAMETHASONE ACETATE [Concomitant]
     Active Substance: DEXAMETHASONE ACETATE
     Dosage: GIVEN FOR PROPHYLAXIS
     Route: 048
     Dates: start: 20220923, end: 20220924
  17. DEXAMETHASONE ACETATE [Concomitant]
     Active Substance: DEXAMETHASONE ACETATE
     Dosage: GIVEN FOR PROPHYLAXIS
     Route: 048
     Dates: start: 20221014, end: 20221015
  18. DEXAMETHASONE ACETATE [Concomitant]
     Active Substance: DEXAMETHASONE ACETATE
     Dosage: GIVEN FOR PROPHYLAXIS
     Route: 048
     Dates: start: 20220902, end: 20220903
  19. DEXAMETHASONE ACETATE [Concomitant]
     Active Substance: DEXAMETHASONE ACETATE
     Dosage: GIVEN FOR PROPHYLAXIS
     Route: 048
     Dates: start: 20221013, end: 20221013
  20. LEVAMLODIPINE BESYLATE [Concomitant]
     Active Substance: LEVAMLODIPINE BESYLATE
     Indication: Hypertension
     Dates: start: 20220127
  21. VALSARTAN [Concomitant]
     Active Substance: VALSARTAN
     Indication: Hypertension
     Dates: start: 20220204
  22. LACTULOSE [Concomitant]
     Active Substance: LACTULOSE
     Indication: Constipation
     Route: 048
     Dates: start: 20210916
  23. TROPISETRON HYDROCHLORIDE [Concomitant]
     Active Substance: TROPISETRON HYDROCHLORIDE
     Indication: Prophylaxis of nausea and vomiting
     Dates: start: 20220722, end: 20220722
  24. TROPISETRON HYDROCHLORIDE [Concomitant]
     Active Substance: TROPISETRON HYDROCHLORIDE
     Indication: Prophylaxis of nausea and vomiting
     Dates: start: 20220812, end: 20220812
  25. TROPISETRON HYDROCHLORIDE [Concomitant]
     Active Substance: TROPISETRON HYDROCHLORIDE
     Dates: start: 20220902, end: 20220902
  26. TROPISETRON HYDROCHLORIDE [Concomitant]
     Active Substance: TROPISETRON HYDROCHLORIDE
     Dates: start: 20220923, end: 20220923
  27. TROPISETRON HYDROCHLORIDE [Concomitant]
     Active Substance: TROPISETRON HYDROCHLORIDE
     Dates: start: 20221014, end: 20221014
  28. OMEPRAZOLE SODIUM [Concomitant]
     Active Substance: OMEPRAZOLE SODIUM
     Dates: start: 20220722, end: 20220722
  29. OMEPRAZOLE SODIUM [Concomitant]
     Active Substance: OMEPRAZOLE SODIUM
     Dates: start: 20220812, end: 20220812
  30. OMEPRAZOLE SODIUM [Concomitant]
     Active Substance: OMEPRAZOLE SODIUM
     Dates: start: 20220902, end: 20220902
  31. OMEPRAZOLE SODIUM [Concomitant]
     Active Substance: OMEPRAZOLE SODIUM
     Dates: start: 20220923, end: 20220923
  32. OMEPRAZOLE SODIUM [Concomitant]
     Active Substance: OMEPRAZOLE SODIUM
     Dates: start: 20221014, end: 20221014
  33. BETAMETHASONE SODIUM PHOSPHATE [Concomitant]
     Active Substance: BETAMETHASONE SODIUM PHOSPHATE
     Indication: Allergy prophylaxis
     Route: 042
     Dates: start: 20220722, end: 20220722
  34. BETAMETHASONE SODIUM PHOSPHATE [Concomitant]
     Active Substance: BETAMETHASONE SODIUM PHOSPHATE
     Route: 042
     Dates: start: 20220812, end: 20220812
  35. BETAMETHASONE SODIUM PHOSPHATE [Concomitant]
     Active Substance: BETAMETHASONE SODIUM PHOSPHATE
     Route: 042
     Dates: start: 20220902, end: 20220902
  36. BETAMETHASONE SODIUM PHOSPHATE [Concomitant]
     Active Substance: BETAMETHASONE SODIUM PHOSPHATE
     Route: 042
     Dates: start: 20220923, end: 20220923
  37. BETAMETHASONE SODIUM PHOSPHATE [Concomitant]
     Active Substance: BETAMETHASONE SODIUM PHOSPHATE
     Route: 042
     Dates: start: 20221014, end: 20221014
  38. LANSOPRAZOLE [Concomitant]
     Active Substance: LANSOPRAZOLE
     Dates: start: 20220722, end: 20220728
  39. ONDANSETRON HYDROCHLORIDE [Concomitant]
     Active Substance: ONDANSETRON HYDROCHLORIDE
     Indication: Prophylaxis of nausea and vomiting
     Dates: start: 20220722, end: 20220727
  40. ONDANSETRON HYDROCHLORIDE [Concomitant]
     Active Substance: ONDANSETRON HYDROCHLORIDE
     Indication: Prophylaxis of nausea and vomiting
     Dates: start: 20220813, end: 20220818
  41. ONDANSETRON HYDROCHLORIDE [Concomitant]
     Active Substance: ONDANSETRON HYDROCHLORIDE
     Dates: start: 20220903, end: 20220908
  42. ONDANSETRON HYDROCHLORIDE [Concomitant]
     Active Substance: ONDANSETRON HYDROCHLORIDE
     Dates: start: 20220924, end: 20220929
  43. ONDANSETRON HYDROCHLORIDE [Concomitant]
     Active Substance: ONDANSETRON HYDROCHLORIDE
     Dates: start: 20221015, end: 20221015
  44. ILAPRAZOLE [Concomitant]
     Active Substance: ILAPRAZOLE
     Dates: start: 20220813, end: 20220822
  45. ILAPRAZOLE [Concomitant]
     Active Substance: ILAPRAZOLE
     Dates: start: 20220903, end: 20220907
  46. ILAPRAZOLE [Concomitant]
     Active Substance: ILAPRAZOLE
     Dates: start: 20220924, end: 20220928
  47. ILAPRAZOLE [Concomitant]
     Active Substance: ILAPRAZOLE
     Dates: start: 20221015, end: 20221019
  48. VITAMIN B12 [Concomitant]
     Active Substance: CYANOCOBALAMIN
     Dates: start: 20220902, end: 20220902
  49. VITAMIN B12 [Concomitant]
     Active Substance: CYANOCOBALAMIN
     Dates: start: 20220923, end: 20220923

REACTIONS (2)
  - Peripheral venous disease [Recovered/Resolved]
  - Superficial vein thrombosis [Recovered/Resolved]

NARRATIVE: CASE EVENT DATE: 20220812
